FAERS Safety Report 7704717-2 (Version None)
Quarter: 2011Q3

REPORT INFORMATION
  Report Type: 
  Country: None (occurrence: None)
  Receive Date: 20110823
  Receipt Date: 20110810
  Transmission Date: 20111222
  Serious: Yes (Hospitalization)
  Sender: FDA-Public Use
  Company Number: PHHY2011US72813

PATIENT
  Age: 61 Year
  Sex: Female

DRUGS (2)
  1. VANCOMYCIN HCL [Suspect]
     Indication: PNEUMONIA
  2. ZOSYN [Suspect]
     Indication: PNEUMONIA

REACTIONS (10)
  - ARTERITIS [None]
  - DRUG LEVEL ABOVE THERAPEUTIC [None]
  - PYREXIA [None]
  - PETECHIAE [None]
  - RENAL FAILURE [None]
  - LEUKOCYTOCLASTIC VASCULITIS [None]
  - PURPURA [None]
  - ANTIBIOTIC RESISTANT STAPHYLOCOCCUS TEST POSITIVE [None]
  - JOINT EFFUSION [None]
  - JOINT SWELLING [None]
